FAERS Safety Report 7261355-6 (Version None)
Quarter: 2011Q1

REPORT INFORMATION
  Report Type: 
  Country: None (occurrence: None)
  Receive Date: 20110120
  Receipt Date: 20110120
  Transmission Date: 20110831
  Serious: No
  Sender: FDA-Public Use
  Company Number: None

PATIENT
  Age: 76 Year
  Sex: Female

DRUGS (1)
  1. ALCOHOL SWABS [Suspect]
     Dates: start: 20100909

REACTIONS (3)
  - APPLICATION SITE SWELLING [None]
  - APPLICATION SITE PAIN [None]
  - PYREXIA [None]
